FAERS Safety Report 23243103 (Version 3)
Quarter: 2024Q2

REPORT INFORMATION
  Report Type: Report from Study
  Country: US (occurrence: US)
  Receive Date: 20231130
  Receipt Date: 20240511
  Transmission Date: 20240716
  Serious: No
  Sender: FDA-Public Use
  Company Number: US-ALXN-A202311181

PATIENT
  Sex: Male

DRUGS (2)
  1. ULTOMIRIS [Suspect]
     Active Substance: RAVULIZUMAB-CWVZ
     Indication: Myasthenia gravis
     Dosage: UNK
     Route: 065
     Dates: start: 202303
  2. SOLIRIS [Suspect]
     Active Substance: ECULIZUMAB
     Indication: Myasthenia gravis
     Dosage: UNK
     Route: 065
     Dates: end: 202303

REACTIONS (2)
  - Gait disturbance [Not Recovered/Not Resolved]
  - Drug effect less than expected [Unknown]
